FAERS Safety Report 18185636 (Version 1)
Quarter: 2020Q3

REPORT INFORMATION
  Report Type: Spontaneous
  Country: DE (occurrence: DE)
  Receive Date: 20200824
  Receipt Date: 20200824
  Transmission Date: 20201103
  Serious: Yes (Hospitalization)
  Sender: FDA-Public Use
  Company Number: DE-TEVA-2020-DE-1816940

PATIENT
  Age: 85 Year
  Sex: Female
  Weight: 52.3 kg

DRUGS (15)
  1. PANTOPRAZOL [Concomitant]
     Active Substance: PANTOPRAZOLE SODIUM
     Dosage: 2 DOSAGE FORMS DAILY; 20 MG, 2?0?0?0
  2. MIRTAZAPIN [Concomitant]
     Active Substance: MIRTAZAPINE
     Dosage: .5 DOSAGE FORMS DAILY; 15 MG, 0?0?0?0.5
  3. MACROGOL ABZ BALANCE [Concomitant]
     Dosage: REQUIREMENT
  4. METAMIZOL [Concomitant]
     Active Substance: METAMIZOLE SODIUM
     Dosage: 1500 MILLIGRAM DAILY; 1?1?1?0
  5. METOPROLOL. [Concomitant]
     Active Substance: METOPROLOL
     Dosage: .5 DOSAGE FORMS DAILY; 47.5 MG, 0.5?0?0?0
  6. TORASEMID [Concomitant]
     Active Substance: TORSEMIDE
     Dosage: 4 DOSAGE FORMS DAILY; 10 MG, 2?2?0?0
  7. COLECALCIFEROL (VITAMIN D) [Concomitant]
     Dosage: 20,000 IU
  8. PREDNISOLON [Suspect]
     Active Substance: PREDNISOLONE
     Dosage: 2 DOSAGE FORMS DAILY; 5 MG, 2?0?0?0
  9. DIMENHYDRINATE. [Concomitant]
     Active Substance: DIMENHYDRINATE
     Dosage: 50 MG, REQUIREMENT
  10. FENTANYL. [Concomitant]
     Active Substance: FENTANYL
     Dosage: 25 YG / H,
  11. APIXABAN [Concomitant]
     Active Substance: APIXABAN
     Dosage: 2 DOSAGE FORMS DAILY; 1?0?1?0
  12. KALINOR?RETARD P 600MG [Concomitant]
     Dosage: 1200 MILLIGRAM DAILY; 1?0?1?0
  13. KORODIN HERZ?KREISLAUF [Concomitant]
     Dosage: REQUIREMENT
  14. RAMIPRIL. [Concomitant]
     Active Substance: RAMIPRIL
     Dosage: .5 DOSAGE FORMS DAILY; 2.5 MG, 0.5?0?0?0
  15. HUMALOG MIX 25/75 KWIKPEN 300E. 100E./ML [Concomitant]
     Dosage: 25 | 75 U / ML, 12?0?4?0

REACTIONS (2)
  - Thirst [Recovering/Resolving]
  - Hyperglycaemia [Recovering/Resolving]
